FAERS Safety Report 7906014-9 (Version None)
Quarter: 2011Q4

REPORT INFORMATION
  Report Type: 
  Country: None (occurrence: None)
  Receive Date: 20111110
  Receipt Date: 20111110
  Transmission Date: 20120403
  Serious: No
  Sender: FDA-Public Use
  Company Number: None

PATIENT
  Sex: Male
  Weight: 113.39 kg

DRUGS (1)
  1. PACERONE [Suspect]
     Indication: ATRIAL FIBRILLATION
     Dosage: 2 TABLETS BY MOUTH
     Route: 048
     Dates: start: 20060427, end: 20060714

REACTIONS (3)
  - OPTIC NERVE DISORDER [None]
  - DRUG INTERACTION [None]
  - BLINDNESS [None]
